FAERS Safety Report 15544714 (Version 1)
Quarter: 2018Q4

REPORT INFORMATION
  Report Type: Spontaneous
  Country: FR (occurrence: FR)
  Receive Date: 20181024
  Receipt Date: 20181024
  Transmission Date: 20190205
  Serious: Yes (Other)
  Sender: FDA-Public Use
  Company Number: FR-TEVA-2018-FR-967850

PATIENT
  Sex: Male

DRUGS (3)
  1. TOLEXINE [Suspect]
     Active Substance: DOXYCYCLINE
     Indication: PRODUCT USED FOR UNKNOWN INDICATION
     Dosage: NOT INFORMED
     Route: 048
  2. TOPALGIC (TRAMADOL HYDROCHLORIDE) [Suspect]
     Active Substance: TRAMADOL HYDROCHLORIDE
     Indication: PRODUCT USED FOR UNKNOWN INDICATION
     Dosage: NOT INFORMED
     Route: 048
  3. ALPRAZOLAM. [Suspect]
     Active Substance: ALPRAZOLAM
     Indication: PRODUCT USED FOR UNKNOWN INDICATION
     Dosage: NOT INFORMED
     Route: 048

REACTIONS (3)
  - Drug abuse [Recovering/Resolving]
  - Drug dependence [Recovering/Resolving]
  - Prescription form tampering [Recovering/Resolving]
